FAERS Safety Report 6258317-4 (Version None)
Quarter: 2009Q3

REPORT INFORMATION
  Report Type: 
  Country: None (occurrence: None)
  Receive Date: 20090707
  Receipt Date: 20090624
  Transmission Date: 20100115
  Serious: Yes (Other)
  Sender: FDA-Public Use
  Company Number: PHHY2009AU26750

PATIENT
  Age: 35 Year
  Sex: Female

DRUGS (4)
  1. VOLTAREN [Suspect]
     Dosage: TWO TO SIX TABLET
     Route: 048
  2. ACETAMINOPHEN W/ CODEINE [Concomitant]
     Dosage: EIGHT TABLET
     Route: 048
  3. VALIUM [Concomitant]
     Dosage: 15 TABS
  4. PANAMAX [Concomitant]
     Dosage: 8-10 TABS

REACTIONS (3)
  - ABNORMAL BEHAVIOUR [None]
  - DRUG ABUSER [None]
  - HOMICIDE [None]
